FAERS Safety Report 24727511 (Version 2)
Quarter: 2024Q4

REPORT INFORMATION
  Report Type: Spontaneous
  Country: PL (occurrence: PL)
  Receive Date: 20241212
  Receipt Date: 20241225
  Transmission Date: 20250115
  Serious: Yes (Other)
  Sender: BIOGEN
  Company Number: PL-BIOGEN-2024BI01293291

PATIENT
  Age: 36 Year
  Sex: Female

DRUGS (1)
  1. TECFIDERA [Suspect]
     Active Substance: DIMETHYL FUMARATE
     Indication: Relapsing-remitting multiple sclerosis
     Route: 050
     Dates: end: 2019

REACTIONS (2)
  - Pulmonary embolism [Unknown]
  - Multiple sclerosis relapse [Unknown]
